FAERS Safety Report 13146708 (Version 1)
Quarter: 2017Q1

REPORT INFORMATION
  Report Type: Spontaneous
  Country: FR (occurrence: FR)
  Receive Date: 20170125
  Receipt Date: 20170125
  Transmission Date: 20170428
  Serious: Yes (Hospitalization)
  Sender: FDA-Public Use
  Company Number: FR-009507513-1701FRA010312

PATIENT
  Age: 70 Year
  Sex: Female

DRUGS (6)
  1. BELUSTINE [Concomitant]
     Active Substance: LOMUSTINE
  2. CYTARABINE. [Concomitant]
     Active Substance: CYTARABINE
  3. VANCOMYCINE SANDOZ [Suspect]
     Active Substance: VANCOMYCIN
     Indication: ANTIBIOTIC PROPHYLAXIS
     Dosage: UNK
     Route: 042
     Dates: start: 20161220, end: 20161226
  4. CEFEPIME [Suspect]
     Active Substance: CEFEPIME HYDROCHLORIDE
     Indication: ANTIBIOTIC PROPHYLAXIS
     Dosage: PANPHARMA
     Route: 065
     Dates: start: 20161215, end: 20161229
  5. IDARUBICIN HYDROCHLORIDE. [Concomitant]
     Active Substance: IDARUBICIN HYDROCHLORIDE
     Dosage: UNK
  6. NOXAFIL [Suspect]
     Active Substance: POSACONAZOLE
     Indication: FUNGAL INFECTION
     Dosage: UNK
     Route: 048
     Dates: start: 20161209, end: 20161230

REACTIONS (1)
  - Dermatitis exfoliative [Recovering/Resolving]

NARRATIVE: CASE EVENT DATE: 20161226
